FAERS Safety Report 14982727 (Version 1)
Quarter: 2018Q2

REPORT INFORMATION
  Report Type: Spontaneous
  Country: US (occurrence: US)
  Receive Date: 20180515
  Receipt Date: 20180515
  Transmission Date: 20180711
  Serious: No
  Sender: FDA-Public Use
  Company Number: None

PATIENT
  Age: 65 Year
  Sex: Female
  Weight: 61.23 kg

DRUGS (17)
  1. CARTCOLOL [Concomitant]
  2. HYDRALAZINE [Concomitant]
     Active Substance: HYDRALAZINE HYDROCHLORIDE
  3. CALCIUM [Concomitant]
     Active Substance: CALCIUM
  4. TYLENOL [Concomitant]
     Active Substance: ACETAMINOPHEN
  5. BIOTIN [Concomitant]
     Active Substance: BIOTIN
  6. CRANBERRY. [Concomitant]
     Active Substance: CRANBERRY
  7. XALATAN [Concomitant]
     Active Substance: LATANOPROST
  8. AZOPT [Concomitant]
     Active Substance: BRINZOLAMIDE
  9. ATRUM [Concomitant]
  10. VALSARTAN. [Concomitant]
     Active Substance: VALSARTAN
  11. FLECANIDE [Concomitant]
     Active Substance: FLECAINIDE
  12. OSELTAMIVIR PHOSPHATE 75MG CAPSULE [Suspect]
     Active Substance: OSELTAMIVIR PHOSPHATE
     Indication: INFLUENZA
     Dosage: ?          QUANTITY:1 DF DOSAGE FORM;?
     Route: 048
     Dates: start: 20180424, end: 20180425
  13. OMEPRAZOLE. [Concomitant]
     Active Substance: OMEPRAZOLE
  14. ELIQUIS [Concomitant]
     Active Substance: APIXABAN
  15. CARDIZEM ER [Concomitant]
     Active Substance: DILTIAZEM HYDROCHLORIDE
  16. TRICOR [Concomitant]
     Active Substance: FENOFIBRATE
  17. MECLIZINE [Concomitant]
     Active Substance: MECLIZINE HYDROCHLORIDE

REACTIONS (3)
  - Rash [None]
  - Pruritus [None]
  - Erythema [None]

NARRATIVE: CASE EVENT DATE: 20180425
